FAERS Safety Report 7932142-8 (Version None)
Quarter: 2011Q4

REPORT INFORMATION
  Report Type: 
  Country: None (occurrence: None)
  Receive Date: 20111121
  Receipt Date: 20110803
  Transmission Date: 20120403
  Serious: No
  Sender: FDA-Public Use
  Company Number: US-AMGEN-USASP2011039382

PATIENT
  Age: 50 Year
  Sex: Female

DRUGS (4)
  1. FOLIC ACID [Concomitant]
  2. ENBREL [Suspect]
     Indication: RHEUMATOID ARTHRITIS
     Dosage: 50 MG, QWK
     Dates: start: 20110715
  3. METHOTREXATE [Concomitant]
     Dosage: 1 UNK, QWK
  4. ANTIINFLAMMATORY AGENTS [Concomitant]

REACTIONS (2)
  - INJECTION SITE PAIN [None]
  - RHEUMATOID ARTHRITIS [None]
